FAERS Safety Report 5728419-7 (Version None)
Quarter: 2008Q2

REPORT INFORMATION
  Report Type: 
  Country: None (occurrence: None)
  Receive Date: 20080506
  Receipt Date: 20080429
  Transmission Date: 20081010
  Serious: Yes (Other)
  Sender: FDA-Public Use
  Company Number: BE-AVENTIS-200813882GDDC

PATIENT
  Age: 50 Year
  Sex: Female

DRUGS (3)
  1. TAXOTERE [Suspect]
     Dosage: DOSE: UNK
     Route: 042
     Dates: start: 20071201
  2. HERCEPTIN [Concomitant]
     Dosage: DOSE: UNK
     Dates: start: 20071201, end: 20080301
  3. HERCEPTIN [Concomitant]
     Dosage: DOSE: UNK
     Dates: start: 20080101

REACTIONS (4)
  - DYSPNOEA [None]
  - OEDEMA PERIPHERAL [None]
  - PALPITATIONS [None]
  - PERICARDITIS [None]
